FAERS Safety Report 5771030-2 (Version None)
Quarter: 2008Q2

REPORT INFORMATION
  Report Type: 
  Country: None (occurrence: None)
  Receive Date: 20080613
  Receipt Date: 20080527
  Transmission Date: 20081010
  Serious: Yes (Other)
  Sender: FDA-Public Use
  Company Number: US-ABBOTT-08P-163-0453520-00

PATIENT
  Sex: Female
  Weight: 67.192 kg

DRUGS (5)
  1. HUMIRA [Suspect]
     Indication: PSORIASIS
     Route: 050
     Dates: start: 20060101
  2. BLOOD PRESSURE MEDICATION, NAME UNKNOWN [Concomitant]
     Indication: BLOOD PRESSURE
     Route: 048
     Dates: start: 20080521
  3. ATAVAN [Concomitant]
     Indication: INSOMNIA
     Dosage: SMALLEST DOSE THERE IS
     Route: 048
  4. ESCITALOPRAM OXALATE [Concomitant]
     Indication: ANXIETY
     Route: 048
  5. SYNTHROID [Concomitant]
     Indication: HYPOTHYROIDISM
     Route: 048

REACTIONS (2)
  - CATARACT OPERATION [None]
  - OVERDOSE [None]
